FAERS Safety Report 5015806-8 (Version None)
Quarter: 2006Q2

REPORT INFORMATION
  Report Type: 
  Country: None (occurrence: None)
  Receive Date: 20060525
  Receipt Date: 20060517
  Transmission Date: 20061013
  Serious: Yes (Other)
  Sender: FDA-Public Use
  Company Number: 2006BH009946

PATIENT
  Age: 38 Year
  Sex: Male

DRUGS (6)
  1. MIDAZOLAM HCL [Suspect]
     Indication: SPINAL FUSION SURGERY
     Dosage: 10 MG IV
     Route: 042
  2. THIOPENTAL SODIUM [Concomitant]
  3. VECURONIUM BROMIDE [Concomitant]
  4. NITROUS OXIDE W/ OXYGEN [Concomitant]
  5. SEVOFLURANE [Concomitant]
  6. FENTANYL [Concomitant]

REACTIONS (7)
  - ANAPHYLACTOID REACTION [None]
  - EYELID OEDEMA [None]
  - FLUSHING [None]
  - HYPOTENSION [None]
  - NO THERAPEUTIC RESPONSE [None]
  - PROCEDURAL COMPLICATION [None]
  - TACHYCARDIA [None]
